FAERS Safety Report 22148759 (Version 1)
Quarter: 2023Q1

REPORT INFORMATION
  Report Type: Spontaneous
  Country: US (occurrence: US)
  Receive Date: 20230328
  Receipt Date: 20230328
  Transmission Date: 20230418
  Serious: No
  Sender: FDA-Public Use
  Company Number: US-CTI BIOPHARMA-2023US03367

PATIENT

DRUGS (1)
  1. VONJO [Suspect]
     Active Substance: PACRITINIB
     Indication: Myelofibrosis
     Dosage: 200 MG, BID
     Route: 048
     Dates: start: 20230114

REACTIONS (6)
  - Fatigue [Unknown]
  - Abdominal distension [Unknown]
  - Contusion [Unknown]
  - Splenomegaly [Unknown]
  - Oedema peripheral [Unknown]
  - Platelet count decreased [Unknown]
